FAERS Safety Report 8085402-7 (Version None)
Quarter: 2012Q1

REPORT INFORMATION
  Report Type: 
  Country: None (occurrence: None)
  Receive Date: 20120128
  Receipt Date: 20110512
  Transmission Date: 20120608
  Serious: No
  Sender: FDA-Public Use
  Company Number: PR-ABBOTT-11P-131-0720995-00

PATIENT
  Sex: Female

DRUGS (7)
  1. TETRACYCLINE [Suspect]
     Indication: PRODUCT USED FOR UNKNOWN INDICATION
     Route: 048
  2. CLINORIL [Concomitant]
     Indication: ARTHRALGIA
     Route: 048
  3. PREDNISONE TAB [Concomitant]
     Indication: INFLAMMATION
     Route: 048
  4. GLYBURIDE [Concomitant]
     Indication: DIABETES MELLITUS
     Route: 048
  5. LEVOXYL [Concomitant]
     Indication: HYPOTHYROIDISM
     Route: 048
  6. HUMIRA [Suspect]
     Indication: RHEUMATOID ARTHRITIS
     Route: 058
     Dates: start: 20090101
  7. COZAAR [Concomitant]
     Indication: HYPERTENSION
     Route: 048

REACTIONS (10)
  - GASTROINTESTINAL DISORDER [None]
  - RASH MACULO-PAPULAR [None]
  - INJECTION SITE ERYTHEMA [None]
  - INJECTION SITE INDURATION [None]
  - BLISTER [None]
  - INJECTION SITE INFLAMMATION [None]
  - INJECTION SITE REACTION [None]
  - FUNGAL SKIN INFECTION [None]
  - PRURITUS GENERALISED [None]
  - OEDEMA PERIPHERAL [None]
